FAERS Safety Report 21788863 (Version 1)
Quarter: 2022Q4

REPORT INFORMATION
  Report Type: Spontaneous
  Country: US (occurrence: None)
  Receive Date: 20221227
  Receipt Date: 20221227
  Transmission Date: 20230113
  Serious: Yes (Death)
  Sender: FDA-Public Use
  Company Number: None

PATIENT
  Age: 70 Year
  Sex: Female
  Weight: 109.77 kg

DRUGS (12)
  1. IBRANCE [Suspect]
     Active Substance: PALBOCICLIB
     Indication: Breast cancer female
     Dosage: FREQUENCY : DAILY;?OTHER ROUTE : OR 21D ON 7D OFF;?
     Route: 050
     Dates: start: 202212, end: 20221220
  2. BELBUCA [Concomitant]
     Active Substance: BUPRENORPHINE HYDROCHLORIDE
  3. CARAFATE [Concomitant]
     Active Substance: SUCRALFATE
  4. ESOMEPRAZOLE [Concomitant]
     Active Substance: ESOMEPRAZOLE
  5. FAMOTIDINE [Concomitant]
     Active Substance: FAMOTIDINE
  6. FULVESTRANT [Concomitant]
     Active Substance: FULVESTRANT
  7. GABAPENTIN [Concomitant]
  8. MORPHINE [Concomitant]
     Active Substance: MORPHINE
  9. OXYBUTYNIN [Concomitant]
     Active Substance: OXYBUTYNIN
  10. PERCOCET [Concomitant]
     Active Substance: ACETAMINOPHEN\OXYCODONE HYDROCHLORIDE
  11. REGLAN [Concomitant]
     Active Substance: METOCLOPRAMIDE HYDROCHLORIDE
  12. TRAMADOL [Concomitant]
     Active Substance: TRAMADOL

REACTIONS (1)
  - Death [None]

NARRATIVE: CASE EVENT DATE: 20221220
